FAERS Safety Report 5674864-8 (Version None)
Quarter: 2008Q2

REPORT INFORMATION
  Report Type: 
  Country: None (occurrence: None)
  Receive Date: 20080305
  Receipt Date: 20070312
  Transmission Date: 20081010
  Serious: Yes (Other)
  Sender: FDA-Public Use
  Company Number: BDI-009216

PATIENT
  Age: 48 Year
  Sex: Female
  Weight: 84.6 kg

DRUGS (3)
  1. ISOVUE-370 [Suspect]
     Indication: COMPUTERISED TOMOGRAM
     Dosage: 100ML ONCE INTRAVENOUS
     Route: 042
     Dates: start: 20070308, end: 20070308
  2. ISOVUE-370 [Suspect]
     Indication: COMPUTERISED TOMOGRAM ABDOMEN
     Dosage: 100ML ONCE INTRAVENOUS
     Route: 042
     Dates: start: 20070308, end: 20070308
  3. ISOVUE-370 [Suspect]
     Indication: WEIGHT DECREASED
     Dosage: 100ML ONCE INTRAVENOUS
     Route: 042
     Dates: start: 20070308, end: 20070308

REACTIONS (1)
  - HYPERSENSITIVITY [None]
